FAERS Safety Report 4318377-4 (Version None)
Quarter: 2004Q1

REPORT INFORMATION
  Report Type: 
  Country: None (occurrence: None)
  Receive Date: 20040315
  Receipt Date: 20040303
  Transmission Date: 20041129
  Serious: Yes (Hospitalization)
  Sender: FDA-Public Use
  Company Number: DE-JNJFOC-20040300895

PATIENT
  Age: 64 Year
  Sex: Male
  Weight: 67.4 kg

DRUGS (1)
  1. REMICADE [Suspect]
     Indication: RHEUMATOID ARTHRITIS
     Dosage: 200 MG, 1 IN 8 WEEK, INTRAVENOUS
     Route: 042
     Dates: start: 20021014

REACTIONS (3)
  - HERPES ZOSTER [None]
  - IMPETIGO [None]
  - NECROSIS [None]
